FAERS Safety Report 16272399 (Version 1)
Quarter: 2019Q2

REPORT INFORMATION
  Report Type: Spontaneous
  Country: ES (occurrence: ES)
  Receive Date: 20190506
  Receipt Date: 20190506
  Transmission Date: 20190711
  Serious: Yes (Other)
  Sender: FDA-Public Use
  Company Number: ES-009507513-1904ESP012399

PATIENT
  Age: 45 Year
  Sex: Female
  Weight: 58 kg

DRUGS (1)
  1. NUVARING [Suspect]
     Active Substance: ETHINYL ESTRADIOL\ETONOGESTREL
     Indication: CONTRACEPTION
     Dosage: 1 ANILLO CADA 21 D?AS
     Route: 067
     Dates: start: 20181211, end: 20190225

REACTIONS (1)
  - Varicose veins vulval [Recovered/Resolved]

NARRATIVE: CASE EVENT DATE: 20190215
